APPROVED DRUG PRODUCT: TOBRADEX
Active Ingredient: DEXAMETHASONE; TOBRAMYCIN
Strength: 0.1%;0.3%
Dosage Form/Route: OINTMENT;OPHTHALMIC
Application: N050616 | Product #001
Applicant: NOVARTIS PHARMACEUTICALS CORP
Approved: Sep 28, 1988 | RLD: Yes | RS: Yes | Type: RX